FAERS Safety Report 6536809-8 (Version None)
Quarter: 2010Q1

REPORT INFORMATION
  Report Type: 
  Country: None (occurrence: None)
  Receive Date: 20100107
  Receipt Date: 20091223
  Transmission Date: 20100710
  Serious: Yes (Life-Threatening, Hospitalization)
  Sender: FDA-Public Use
  Company Number: AE 2009-107

PATIENT
  Age: 60 Year
  Sex: Male
  Weight: 74.526 kg

DRUGS (14)
  1. FAZACLO ODT [Suspect]
     Indication: SCHIZOPHRENIA
     Dosage: 200 MG BID PO
     Route: 048
     Dates: start: 20080501
  2. MIRLAX [Concomitant]
  3. WELLBUTRIN [Concomitant]
  4. LEXAPRO [Concomitant]
  5. SINGULAIR [Concomitant]
  6. NAMENDA [Concomitant]
  7. ALBUTEROL [Concomitant]
  8. RISPERDAL [Concomitant]
  9. ASPIRIN [Concomitant]
  10. COLACE [Concomitant]
  11. REVIA [Concomitant]
  12. REMERON SOLTAB [Concomitant]
  13. PINDOLOL [Concomitant]
  14. TYLENOL (CAPLET) [Concomitant]

REACTIONS (5)
  - CHOKING [None]
  - PULSE ABSENT [None]
  - RESPIRATORY ARREST [None]
  - SYNCOPE [None]
  - UNRESPONSIVE TO STIMULI [None]
